FAERS Safety Report 13587822 (Version 4)
Quarter: 2018Q4

REPORT INFORMATION
  Report Type: Report from Study
  Country: US (occurrence: US)
  Receive Date: 20170527
  Receipt Date: 20181212
  Transmission Date: 20190204
  Serious: No
  Sender: FDA-Public Use
  Company Number: PHEH2017US015869

PATIENT
  Age: 39 Year
  Sex: Female

DRUGS (4)
  1. COSENTYX [Suspect]
     Active Substance: SECUKINUMAB
     Indication: PSORIATIC ARTHROPATHY
     Dosage: 300 MG, QMO
     Route: 058
     Dates: start: 20170302
  2. COSENTYX [Suspect]
     Active Substance: SECUKINUMAB
     Dosage: 300 MG, QMO
     Route: 058
     Dates: start: 20170404
  3. COSENTYX [Suspect]
     Active Substance: SECUKINUMAB
     Indication: PSORIASIS
     Dosage: 300 MG, QMO
     Route: 058
     Dates: start: 20170222
  4. COSENTYX [Suspect]
     Active Substance: SECUKINUMAB
     Dosage: 300 MG, QMO
     Route: 058
     Dates: start: 201810

REACTIONS (9)
  - Pruritus [Unknown]
  - Injection site haemorrhage [Unknown]
  - Skin mass [Unknown]
  - Oropharyngeal pain [Not Recovered/Not Resolved]
  - Pain of skin [Unknown]
  - Rash pruritic [Unknown]
  - Wrong technique in device usage process [Unknown]
  - Skin plaque [Unknown]
  - Migraine [Unknown]

NARRATIVE: CASE EVENT DATE: 20170522
